FAERS Safety Report 6123520-0 (Version None)
Quarter: 2009Q1

REPORT INFORMATION
  Report Type: 
  Country: None (occurrence: None)
  Receive Date: 20090318
  Receipt Date: 20090303
  Transmission Date: 20090719
  Serious: Yes (Death, Hospitalization)
  Sender: FDA-Public Use
  Company Number: NL-GENENTECH-223068

PATIENT
  Sex: Female

DRUGS (10)
  1. BEVACIZUMAB [Suspect]
     Indication: COLORECTAL CANCER
     Dosage: 450 MG, Q3W
     Route: 042
     Dates: start: 20060222
  2. CAPECITABINE [Suspect]
     Indication: COLORECTAL CANCER
     Dosage: 3300 MG, QD
     Route: 048
     Dates: start: 20060222
  3. OXALIPLATIN [Suspect]
     Indication: COLORECTAL CANCER
     Dosage: 210 MG, Q3W
     Route: 042
     Dates: start: 20060222
  4. DURAGESIC-100 [Concomitant]
     Indication: DRUG USE FOR UNKNOWN INDICATION
  5. GLIMEPIRIDE [Concomitant]
     Indication: DRUG USE FOR UNKNOWN INDICATION
  6. MACROGOL [Concomitant]
     Indication: DRUG USE FOR UNKNOWN INDICATION
  7. NAPROXEN [Concomitant]
     Indication: DRUG USE FOR UNKNOWN INDICATION
  8. PANTOPRAZOLE SODIUM [Concomitant]
     Indication: DRUG USE FOR UNKNOWN INDICATION
  9. DEXAMETHASONE TAB [Concomitant]
     Indication: DRUG USE FOR UNKNOWN INDICATION
  10. AMITRIPTLINE HYDROCHLORIDE TAB [Concomitant]
     Indication: DRUG USE FOR UNKNOWN INDICATION

REACTIONS (2)
  - GASTROINTESTINAL PERFORATION [None]
  - PNEUMONIA [None]
